FAERS Safety Report 20150699 (Version 1)
Quarter: 2021Q4

REPORT INFORMATION
  Report Type: Spontaneous
  Country: CH (occurrence: None)
  Receive Date: 20211206
  Receipt Date: 20211206
  Transmission Date: 20220303
  Serious: Yes (Other)
  Sender: FDA-Public Use
  Company Number: CH-ROCHE-2969989

PATIENT
  Sex: Female

DRUGS (14)
  1. RITUXIMAB [Suspect]
     Active Substance: RITUXIMAB
     Indication: Diffuse large B-cell lymphoma
     Dosage: 1L RITUXIMAB-CHOP
     Route: 065
     Dates: start: 20181201
  2. RITUXIMAB [Suspect]
     Active Substance: RITUXIMAB
     Dosage: 2L RITUXIMAB-DHAP
     Route: 065
     Dates: start: 20190701
  3. RITUXIMAB [Suspect]
     Active Substance: RITUXIMAB
     Dosage: 3L RITUXIMAB-BENDAMUSTINE-POLIVY
     Route: 065
     Dates: start: 20200201
  4. RITUXIMAB [Suspect]
     Active Substance: RITUXIMAB
     Dosage: 6L LENALIDOMIDE-RITUXIMAB
     Route: 065
     Dates: start: 20211123
  5. POLIVY [Suspect]
     Active Substance: POLATUZUMAB VEDOTIN-PIIQ
     Indication: Diffuse large B-cell lymphoma
     Route: 065
     Dates: start: 20200201
  6. BENDAMUSTINE [Concomitant]
     Active Substance: BENDAMUSTINE
     Dates: start: 20200201
  7. CYCLOPHOSPHAMIDE [Concomitant]
     Active Substance: CYCLOPHOSPHAMIDE
     Dates: start: 20181201
  8. DOXORUBICIN HYDROCHLORIDE [Concomitant]
     Active Substance: DOXORUBICIN HYDROCHLORIDE
     Dates: start: 20181201
  9. VINCRISTINE [Concomitant]
     Active Substance: VINCRISTINE
     Dates: start: 20181201
  10. PREDNISONE [Concomitant]
     Active Substance: PREDNISONE
     Dates: start: 20181201
  11. DEXAMETHASONE [Concomitant]
     Active Substance: DEXAMETHASONE
     Dates: start: 20190701
  12. CYTARABINE [Concomitant]
     Active Substance: CYTARABINE
     Dates: start: 20190701
  13. CISPLATIN [Concomitant]
     Active Substance: CISPLATIN
     Dates: start: 20190701
  14. LENALIDOMIDE [Concomitant]
     Active Substance: LENALIDOMIDE
     Dates: start: 20211123

REACTIONS (1)
  - Disease progression [Unknown]
